FAERS Safety Report 18952581 (Version 17)
Quarter: 2022Q1

REPORT INFORMATION
  Report Type: Report from Study
  Country: DO (occurrence: DO)
  Receive Date: 20210301
  Receipt Date: 20220208
  Transmission Date: 20220423
  Serious: Yes (Life-Threatening, Disabling, Other)
  Sender: FDA-Public Use
  Company Number: PHHY2019DO143144

PATIENT
  Age: 66 Year
  Sex: Male
  Weight: 71.655 kg

DRUGS (14)
  1. GILENYA [Suspect]
     Active Substance: FINGOLIMOD HYDROCHLORIDE
     Indication: Relapsing-remitting multiple sclerosis
     Dosage: 1 DF, QD AT BREAKFAST
     Route: 065
     Dates: start: 201904
  2. GILENYA [Suspect]
     Active Substance: FINGOLIMOD HYDROCHLORIDE
     Dosage: 0.5 MG, QD
     Route: 048
     Dates: start: 20190515
  3. GILENYA [Suspect]
     Active Substance: FINGOLIMOD HYDROCHLORIDE
     Dosage: 0.5 MG, QD
     Route: 048
     Dates: start: 20190614
  4. GILENYA [Suspect]
     Active Substance: FINGOLIMOD HYDROCHLORIDE
     Dosage: 0.5 MG, QD
     Route: 048
     Dates: start: 20190615
  5. GILENYA [Suspect]
     Active Substance: FINGOLIMOD HYDROCHLORIDE
     Dosage: 0.5 MG
     Route: 048
  6. GILENYA [Suspect]
     Active Substance: FINGOLIMOD HYDROCHLORIDE
     Dosage: 0.5 MG, QD
     Route: 065
  7. DIOVAN [Suspect]
     Active Substance: VALSARTAN
     Indication: Hypertension
     Dosage: 80 MG
     Route: 065
  8. VITAMIN B COMPLEX [Concomitant]
     Active Substance: CYANOCOBALAMIN\DEXPANTHENOL\NIACINAMIDE\PYRIDOXINE HYDROCHLORIDE\RIBOFLAVIN 5^-PHOSPHATE SODIUM\THIA
     Indication: Product used for unknown indication
     Dosage: 5000 UNK
     Route: 065
  9. VITAMIN D [Concomitant]
     Active Substance: VITAMIN D NOS
     Indication: Multiple sclerosis
     Dosage: 5000 UNK, UNK (DAILY)
     Route: 065
  10. VITAMIN D [Concomitant]
     Active Substance: VITAMIN D NOS
     Dosage: 1 DF, QD
     Route: 065
  11. MAGNESIUM [Concomitant]
     Active Substance: MAGNESIUM
     Indication: Osteoarthritis
     Dosage: 600 MG, BID (1 TABLET IN THE DAY AND 1 TABLET AT NIGHT)
     Route: 065
  12. MAGNESIUM [Concomitant]
     Active Substance: MAGNESIUM
     Dosage: 1 DF, QD
     Route: 065
  13. NEUROBION [Concomitant]
     Active Substance: CYANOCOBALAMIN\PYRIDOXINE\THIAMINE
     Indication: Multiple sclerosis
     Dosage: 1 DF, QD
     Route: 065
  14. ACICRAN [Concomitant]
     Indication: Prophylaxis urinary tract infection
     Dosage: 1 DF, QD
     Route: 065

REACTIONS (63)
  - Anxiety [Recovering/Resolving]
  - Gait disturbance [Not Recovered/Not Resolved]
  - Paralysis [Unknown]
  - Choking [Unknown]
  - Muscle rupture [Unknown]
  - Immunosuppression [Unknown]
  - Multiple sclerosis relapse [Not Recovered/Not Resolved]
  - Paraesthesia [Unknown]
  - Hernia [Recovered/Resolved]
  - Amnesia [Recovering/Resolving]
  - Muscle spasms [Recovered/Resolved]
  - Winged scapula [Recovered/Resolved]
  - Ocular discomfort [Recovered/Resolved]
  - Musculoskeletal discomfort [Recovered/Resolved]
  - Scoliosis [Recovered/Resolved]
  - Memory impairment [Recovering/Resolving]
  - Dysphagia [Recovering/Resolving]
  - Nasal congestion [Not Recovered/Not Resolved]
  - Dysuria [Not Recovered/Not Resolved]
  - Oropharyngeal discomfort [Recovering/Resolving]
  - Muscle spasms [Unknown]
  - Eye pain [Unknown]
  - General physical health deterioration [Unknown]
  - Gallbladder disorder [Unknown]
  - Spinal disorder [Unknown]
  - Nerve compression [Unknown]
  - Depressed mood [Not Recovered/Not Resolved]
  - Investigation abnormal [Unknown]
  - Ligament sprain [Unknown]
  - Joint swelling [Unknown]
  - Injury [Unknown]
  - Musculoskeletal disorder [Unknown]
  - Kyphosis [Unknown]
  - Myopathy [Unknown]
  - Weight decreased [Unknown]
  - Fatigue [Unknown]
  - Osteoarthritis [Unknown]
  - Condition aggravated [Unknown]
  - Discomfort [Recovering/Resolving]
  - Blood pressure decreased [Unknown]
  - Abdominal pain upper [Unknown]
  - Feeling abnormal [Recovering/Resolving]
  - Limb discomfort [Unknown]
  - Emotional disorder [Unknown]
  - Balance disorder [Not Recovered/Not Resolved]
  - Mobility decreased [Unknown]
  - Crying [Unknown]
  - Malaise [Unknown]
  - Atrophy [Not Recovered/Not Resolved]
  - Pain [Unknown]
  - Head injury [Unknown]
  - Dysphonia [Not Recovered/Not Resolved]
  - Palpitations [Unknown]
  - Dysstasia [Unknown]
  - Fall [Recovering/Resolving]
  - Inflammation [Recovering/Resolving]
  - Hypertension [Unknown]
  - Asthenia [Not Recovered/Not Resolved]
  - Heart rate decreased [Unknown]
  - Headache [Recovering/Resolving]
  - Dyspnoea [Unknown]
  - Arthralgia [Unknown]
  - Product availability issue [Unknown]

NARRATIVE: CASE EVENT DATE: 20190615
